FAERS Safety Report 24150542 (Version 1)
Quarter: 2024Q3

REPORT INFORMATION
  Report Type: Spontaneous
  Country: JO (occurrence: JO)
  Receive Date: 20240730
  Receipt Date: 20240730
  Transmission Date: 20241017
  Serious: Yes (Other)
  Sender: ROCHE
  Company Number: JO-ROCHE-10000036734

PATIENT
  Age: 57 Year
  Sex: Female

DRUGS (3)
  1. PERJETA [Suspect]
     Active Substance: PERTUZUMAB
     Indication: Breast cancer stage IV
     Route: 065
     Dates: start: 20230929
  2. HERCEPTIN [Suspect]
     Active Substance: TRASTUZUMAB
     Indication: Breast cancer stage IV
     Route: 065
     Dates: start: 20230928
  3. TAXOTERE [Concomitant]
     Active Substance: DOCETAXEL

REACTIONS (5)
  - Hepatic lesion [Unknown]
  - Metastases to lung [Unknown]
  - Pneumonitis [Unknown]
  - Metastases to liver [Unknown]
  - Breast cancer metastatic [Unknown]
